FAERS Safety Report 8057453-X (Version None)
Quarter: 2012Q1

REPORT INFORMATION
  Report Type: 
  Country: None (occurrence: None)
  Receive Date: 20120119
  Receipt Date: 20120106
  Transmission Date: 20120608
  Serious: Yes (Hospitalization)
  Sender: FDA-Public Use
  Company Number: US-ROCHE-1030805

PATIENT

DRUGS (2)
  1. ALBUTEROL [Concomitant]
     Indication: WHEEZING
     Dates: start: 20111031
  2. OMALIZUMAB [Suspect]
     Indication: ASTHMA
     Dosage: LAST DOSE PRIOR TO EVENT ONSET WAS 300 MG ON 21DEC2010
     Route: 064
     Dates: start: 20100422

REACTIONS (3)
  - CAESAREAN SECTION [None]
  - PNEUMONIA [None]
  - MATERNAL EXPOSURE TIMING UNSPECIFIED [None]
